FAERS Safety Report 7232545-3 (Version None)
Quarter: 2011Q1

REPORT INFORMATION
  Report Type: 
  Country: None (occurrence: None)
  Receive Date: 20110119
  Receipt Date: 20110106
  Transmission Date: 20110831
  Serious: Yes (Other)
  Sender: FDA-Public Use
  Company Number: US-US-EMD SERONO, INC.-230746K08USA

PATIENT
  Sex: Male
  Weight: 84 kg

DRUGS (2)
  1. METFORMIN HCL [Concomitant]
  2. REBIF [Suspect]
     Indication: MULTIPLE SCLEROSIS
     Route: 058
     Dates: start: 20030106

REACTIONS (2)
  - COGNITIVE DISORDER [None]
  - DIABETES MELLITUS [None]
